FAERS Safety Report 11653722 (Version 4)
Quarter: 2015Q4

REPORT INFORMATION
  Report Type: Spontaneous
  Country: KR (occurrence: KR)
  Receive Date: 20151022
  Receipt Date: 20151110
  Transmission Date: 20160304
  Serious: Yes (Other)
  Sender: FDA-Public Use
  Company Number: KR-BAXTER-2015BAX056424

PATIENT
  Age: 28 Year
  Sex: Female

DRUGS (5)
  1. HOLOXAN 1000MG INJ (IFOSFAMIDE) [Suspect]
     Active Substance: IFOSFAMIDE
     Indication: CLEAR CELL SARCOMA OF SOFT TISSUE
     Dosage: 4 CYCLES
     Route: 065
  2. VINCRISTINE [Suspect]
     Active Substance: VINCRISTINE
     Indication: CLEAR CELL SARCOMA OF SOFT TISSUE
     Dosage: 4 CYCLES
     Route: 065
  3. DOXORUBICIN [Suspect]
     Active Substance: DOXORUBICIN
     Indication: CLEAR CELL SARCOMA OF SOFT TISSUE
     Dosage: 4 CYCLES
     Route: 065
  4. ENDOXAN 500MG INJ. (CYCLOPHOSPHAMIDE) [Suspect]
     Active Substance: CYCLOPHOSPHAMIDE
     Indication: CLEAR CELL SARCOMA OF SOFT TISSUE
     Dosage: 4 CYCLES
     Route: 065
  5. ETOPOSIDE. [Suspect]
     Active Substance: ETOPOSIDE
     Indication: CLEAR CELL SARCOMA OF SOFT TISSUE
     Dosage: 4 CYCLES
     Route: 065

REACTIONS (3)
  - No therapeutic response [Unknown]
  - Infected neoplasm [Recovering/Resolving]
  - Gastric fistula [Recovering/Resolving]
